FAERS Safety Report 22363812 (Version 1)
Quarter: 2023Q2

REPORT INFORMATION
  Report Type: Spontaneous
  Country: US (occurrence: US)
  Receive Date: 20230525
  Receipt Date: 20230525
  Transmission Date: 20230721
  Serious: No
  Sender: FDA-Public Use
  Company Number: US-UCBSA-2022055043

PATIENT
  Sex: Female
  Weight: 42 kg

DRUGS (7)
  1. CIMZIA [Suspect]
     Active Substance: CERTOLIZUMAB PEGOL
     Indication: Crohn^s disease
     Dosage: 200 MILLIGRAM, WEEKLY (QW)
     Route: 058
     Dates: start: 20220428
  2. PFIZER-BIONTECH COVID-19 VACCINE [Concomitant]
     Active Substance: TOZINAMERAN
     Indication: COVID-19 immunisation
  3. IRON [Concomitant]
     Active Substance: IRON
     Indication: Product used for unknown indication
  4. VITAMINS [Concomitant]
     Active Substance: VITAMINS
     Indication: Product used for unknown indication
  5. CHOLECALCIFEROL [Concomitant]
     Active Substance: CHOLECALCIFEROL
     Indication: Product used for unknown indication
  6. ZINC [Concomitant]
     Active Substance: ZINC
     Indication: Product used for unknown indication
  7. PREDNISONE [Concomitant]
     Active Substance: PREDNISONE
     Indication: Product used for unknown indication

REACTIONS (6)
  - Illness [Not Recovered/Not Resolved]
  - Malaise [Not Recovered/Not Resolved]
  - COVID-19 immunisation [Unknown]
  - Therapy interrupted [Unknown]
  - Product availability issue [Unknown]
  - Product use issue [Unknown]
